FAERS Safety Report 4676459-1 (Version None)
Quarter: 2005Q2

REPORT INFORMATION
  Report Type: 
  Country: None (occurrence: None)
  Receive Date: 20050527
  Receipt Date: 20050309
  Transmission Date: 20051028
  Serious: Yes (Hospitalization, Disabling)
  Sender: FDA-Public Use
  Company Number: US-MERCK-0503USA01678

PATIENT
  Age: 53 Year
  Sex: Male
  Weight: 94 kg

DRUGS (23)
  1. VIOXX [Suspect]
     Indication: OSTEOARTHRITIS
     Route: 048
     Dates: start: 20000301, end: 20040901
  2. VIOXX [Suspect]
     Route: 048
     Dates: start: 20000301, end: 20040901
  3. VIOXX [Suspect]
     Route: 048
     Dates: start: 20040304
  4. VIOXX [Suspect]
     Route: 048
     Dates: start: 20000317
  5. VIOXX [Suspect]
     Route: 048
     Dates: start: 20000301, end: 20040901
  6. VIOXX [Suspect]
     Route: 048
     Dates: start: 20000301, end: 20040901
  7. VIOXX [Suspect]
     Route: 048
     Dates: start: 20040304
  8. VIOXX [Suspect]
     Route: 048
     Dates: start: 20000317
  9. CYCLOBENZAPRINE HYDROCHLORIDE [Concomitant]
     Route: 065
     Dates: start: 20000301
  10. FOLTX [Concomitant]
     Route: 065
  11. FROVA [Concomitant]
     Route: 065
  12. NADOLOL [Concomitant]
     Route: 065
  13. NEXIUM [Concomitant]
     Route: 065
  14. PEPCID AC [Concomitant]
     Route: 065
  15. PROCHLORPERAZINE [Concomitant]
     Route: 065
     Dates: start: 20030901
  16. TETRACYCLINE [Concomitant]
     Route: 065
  17. CYANOCOBALAMIN [Concomitant]
     Route: 065
  18. ASCORBIC ACID [Concomitant]
     Route: 065
     Dates: start: 19970101
  19. SAW PALMETTO [Concomitant]
     Route: 065
     Dates: start: 19970101
  20. OCUVITE LUTEIN [Concomitant]
     Route: 065
     Dates: start: 19970101
  21. ADVIL [Concomitant]
     Route: 065
     Dates: start: 19930101, end: 20030101
  22. TYLENOL (CAPLET) [Concomitant]
     Route: 065
     Dates: start: 19930101, end: 20030101
  23. AMBIEN [Concomitant]
     Route: 065

REACTIONS (33)
  - ABDOMINAL DISCOMFORT [None]
  - ACUTE MYOCARDIAL INFARCTION [None]
  - ADJUSTMENT DISORDER [None]
  - ALCOHOLISM [None]
  - BRONCHITIS ACUTE [None]
  - CHANGE OF BOWEL HABIT [None]
  - CHEST DISCOMFORT [None]
  - CHEST PAIN [None]
  - CHOLELITHIASIS [None]
  - CORONARY ARTERY DISEASE [None]
  - CORONARY ARTERY OCCLUSION [None]
  - CORONARY ARTERY STENOSIS [None]
  - CORONARY OSTIAL STENOSIS [None]
  - DEPRESSION [None]
  - DYSPEPSIA [None]
  - EYE PAIN [None]
  - GASTRITIS [None]
  - HAEMATOMA [None]
  - HEADACHE [None]
  - HYPERLIPIDAEMIA [None]
  - INFUSION SITE REACTION [None]
  - INSOMNIA [None]
  - MIGRAINE [None]
  - MUSCLE SPASMS [None]
  - MYOCARDIAL ISCHAEMIA [None]
  - NAUSEA [None]
  - NON-CARDIAC CHEST PAIN [None]
  - OESOPHAGEAL SPASM [None]
  - OSTEOARTHRITIS [None]
  - PEPTIC ULCER [None]
  - RHINITIS [None]
  - SINUSITIS [None]
  - VEIN DISORDER [None]
